FAERS Safety Report 20489172 (Version 4)
Quarter: 2023Q1

REPORT INFORMATION
  Report Type: Spontaneous
  Country: JP (occurrence: JP)
  Receive Date: 20220218
  Receipt Date: 20230220
  Transmission Date: 20230418
  Serious: Yes (Death, Hospitalization)
  Sender: FDA-Public Use
  Company Number: JP-JNJFOC-20220119284

PATIENT
  Age: 74 Year
  Sex: Female

DRUGS (14)
  1. UPTRAVI [Suspect]
     Active Substance: SELEXIPAG
     Indication: Pulmonary arterial hypertension
     Route: 048
     Dates: start: 20210707
  2. UPTRAVI [Suspect]
     Active Substance: SELEXIPAG
     Route: 048
  3. UPTRAVI [Suspect]
     Active Substance: SELEXIPAG
     Route: 048
     Dates: end: 20211128
  4. OPSUMIT [Suspect]
     Active Substance: MACITENTAN
     Indication: Pulmonary arterial hypertension
     Route: 048
  5. OPSUMIT [Suspect]
     Active Substance: MACITENTAN
     Route: 048
  6. ADCIRCA [Suspect]
     Active Substance: TADALAFIL
     Indication: Pulmonary arterial hypertension
     Route: 048
     Dates: start: 20200704
  7. ADCIRCA [Suspect]
     Active Substance: TADALAFIL
     Route: 048
     Dates: end: 20211106
  8. FUROSEMIDE [Concomitant]
     Active Substance: FUROSEMIDE
  9. SPIRONOLACTONE [Concomitant]
     Active Substance: SPIRONOLACTONE
  10. BISOPROLOL [Concomitant]
     Active Substance: BISOPROLOL
  11. ELIQUIS [Concomitant]
     Active Substance: APIXABAN
  12. MOSAPRIDE CITRATE [Concomitant]
     Active Substance: MOSAPRIDE CITRATE
  13. TOLVAPTAN [Concomitant]
     Active Substance: TOLVAPTAN
  14. ADEMPAS [Concomitant]
     Active Substance: RIOCIGUAT
     Indication: Pulmonary arterial hypertension
     Dosage: /NOV-2021 START DATE

REACTIONS (6)
  - Respiratory failure [Fatal]
  - Dyspnoea [Fatal]
  - Pulmonary arterial hypertension [Recovering/Resolving]
  - Palpitations [Unknown]
  - Dyspnoea [Unknown]
  - Off label use [Unknown]

NARRATIVE: CASE EVENT DATE: 20211124
